FAERS Safety Report 6063349-5 (Version None)
Quarter: 2009Q1

REPORT INFORMATION
  Report Type: 
  Country: None (occurrence: None)
  Receive Date: 20090203
  Receipt Date: 20090122
  Transmission Date: 20090719
  Serious: Yes (Other)
  Sender: FDA-Public Use
  Company Number: AE-AMGEN-US330971

PATIENT
  Age: 55 Year
  Sex: Female
  Weight: 90 kg

DRUGS (6)
  1. ENBREL [Suspect]
     Indication: PSORIASIS
     Dosage: UNSPECIFIED DOSE TWICE WEEKLY
     Route: 058
     Dates: start: 20060625
  2. DOMPERIDONE [Concomitant]
     Dosage: 1X3X30
  3. NEXIUM [Concomitant]
     Dosage: 40 GX1X30
  4. CARVEDILOL [Concomitant]
     Indication: CORONARY ARTERY INSUFFICIENCY
     Dosage: 6.25X1X30
  5. TRIMETAZIDINE [Concomitant]
     Indication: HYPERTENSION
     Dosage: 1X2X30
  6. COZAAR [Concomitant]
     Indication: HYPERLIPIDAEMIA
     Dosage: 1X1X30

REACTIONS (2)
  - BLOOD CREATININE INCREASED [None]
  - BLOOD UREA INCREASED [None]
